FAERS Safety Report 9712049 (Version 2)
Quarter: 2014Q2

REPORT INFORMATION
  Report Type: Spontaneous
  Country: US (occurrence: US)
  Receive Date: 20131126
  Receipt Date: 20140510
  Transmission Date: 20141212
  Serious: Yes (Other)
  Sender: FDA-Public Use
  Company Number: US-BRISTOL-MYERS SQUIBB COMPANY-19140813

PATIENT
  Age: 71 Year
  Sex: Female

DRUGS (23)
  1. BYDUREON [Suspect]
     Indication: TYPE 2 DIABETES MELLITUS
     Route: 058
     Dates: start: 20130625, end: 20130716
  2. WELCHOL [Concomitant]
  3. ATENOLOL [Concomitant]
  4. METFORMIN [Concomitant]
  5. POTASSIUM [Concomitant]
  6. HYDROCHLOROTHIAZIDE [Concomitant]
  7. ALLEGRA [Concomitant]
  8. CRESTOR [Concomitant]
  9. SYNTHROID [Concomitant]
  10. LANTUS [Concomitant]
  11. NEXIUM [Concomitant]
  12. SINGULAIR [Concomitant]
  13. FUROSEMIDE [Concomitant]
     Route: 048
  14. KLOR-CON [Concomitant]
     Route: 048
  15. FLECTOR [Concomitant]
     Dosage: EXTENDED RELEASE PATCH
     Route: 061
  16. ACETAMINOPHEN + HYDROCODONE [Concomitant]
     Route: 048
  17. MEDROL [Concomitant]
     Route: 048
  18. EPIPEN [Concomitant]
  19. MECLIZINE [Concomitant]
     Route: 048
  20. LATANOPROST [Concomitant]
     Dosage: AT NIGHT TIME
     Route: 047
  21. ALLOPURINOL [Concomitant]
     Route: 048
  22. PROAIR HFA [Concomitant]
     Dosage: 1DF:2 PUFFS
  23. FERROUS SULFATE [Concomitant]
     Route: 048

REACTIONS (2)
  - Renal failure acute [Recovered/Resolved]
  - Drug hypersensitivity [Unknown]
